FAERS Safety Report 25177618 (Version 1)
Quarter: 2025Q2

REPORT INFORMATION
  Report Type: Spontaneous
  Country: US (occurrence: US)
  Receive Date: 20250409
  Receipt Date: 20250409
  Transmission Date: 20250717
  Serious: No
  Sender: BAXTER
  Company Number: US-BAXTER-2025BAX013532

PATIENT
  Age: 58 Year
  Sex: Female

DRUGS (2)
  1. ANTICOAGULANT SODIUM CITRATE [Suspect]
     Active Substance: SODIUM CITRATE
     Indication: Fluid replacement
     Route: 042
     Dates: start: 20250328, end: 20250328
  2. SODIUM CHLORIDE [Suspect]
     Active Substance: SODIUM CHLORIDE
     Indication: Fluid replacement
     Route: 042
     Dates: start: 20250328, end: 20250328

REACTIONS (9)
  - Pain in extremity [Recovering/Resolving]
  - Gastrooesophageal reflux disease [Not Recovered/Not Resolved]
  - Fluid retention [Recovering/Resolving]
  - Visual impairment [Recovered/Resolved]
  - Blood sodium increased [Unknown]
  - Headache [Recovering/Resolving]
  - Confusional state [Recovering/Resolving]
  - Eye swelling [Recovered/Resolved]
  - Feeling hot [Recovered/Resolved]

NARRATIVE: CASE EVENT DATE: 20250328
